FAERS Safety Report 14224644 (Version 4)
Quarter: 2019Q3

REPORT INFORMATION
  Report Type: Report from Study
  Country: US (occurrence: US)
  Receive Date: 20171127
  Receipt Date: 20190723
  Transmission Date: 20191004
  Serious: Yes (Hospitalization, Other)
  Sender: FDA-Public Use
  Company Number: US-BIOGEN-2017BI00486968

PATIENT
  Age: 47 Year
  Sex: Female

DRUGS (2)
  1. TYSABRI [Suspect]
     Active Substance: NATALIZUMAB
     Route: 050
     Dates: start: 20190617
  2. TYSABRI [Suspect]
     Active Substance: NATALIZUMAB
     Indication: MULTIPLE SCLEROSIS
     Dosage: INFUSED OVER 1 HOUR
     Route: 050
     Dates: start: 20170830, end: 20171130

REACTIONS (6)
  - Diabetes mellitus [Not Recovered/Not Resolved]
  - Obstruction gastric [Recovered/Resolved]
  - Impaired gastric emptying [Unknown]
  - Wound infection bacterial [Unknown]
  - Post procedural complication [Unknown]
  - Hernia [Unknown]

NARRATIVE: CASE EVENT DATE: 201903
